FAERS Safety Report 25484031 (Version 1)
Quarter: 2025Q2

REPORT INFORMATION
  Report Type: Spontaneous
  Country: US (occurrence: None)
  Receive Date: 20250626
  Receipt Date: 20250626
  Transmission Date: 20250717
  Serious: No
  Sender: FDA-CTU
  Company Number: None

PATIENT
  Age: 47 Year
  Sex: Male
  Weight: 105.75 kg

DRUGS (7)
  1. KENALOG [Suspect]
     Active Substance: TRIAMCINOLONE ACETONIDE
     Indication: Arthritis
     Dates: start: 20250624, end: 20250624
  2. LOSARTAN [Concomitant]
     Active Substance: LOSARTAN
  3. TADALAFIL [Concomitant]
     Active Substance: TADALAFIL
  4. FAMOTIDINE [Concomitant]
     Active Substance: FAMOTIDINE
  5. DIETARY SUPPLEMENT [Concomitant]
     Active Substance: DIETARY SUPPLEMENT
  6. COENZYME Q10 [Concomitant]
     Active Substance: DIETARY SUPPLEMENT\UBIDECARENONE
  7. VITAMINS [Concomitant]
     Active Substance: VITAMINS

REACTIONS (10)
  - Arthralgia [None]
  - Cardiac flutter [None]
  - Anxiety [None]
  - Agitation [None]
  - Fear [None]
  - Irritability [None]
  - Restlessness [None]
  - Aggression [None]
  - Vertigo [None]
  - Impaired driving ability [None]

NARRATIVE: CASE EVENT DATE: 20250624
